FAERS Safety Report 8604404-2 (Version None)
Quarter: 2012Q3

REPORT INFORMATION
  Report Type: 
  Country: None (occurrence: None)
  Receive Date: 20120820
  Receipt Date: 20120809
  Transmission Date: 20120928
  Serious: Yes (Hospitalization)
  Sender: FDA-Public Use
  Company Number: BR-US-EMD SERONO, INC.-7111743

PATIENT
  Sex: Female

DRUGS (8)
  1. ENALAPRIL [Concomitant]
     Indication: HYPERTENSION
  2. HYDROCHLOROTHIAZIDE [Concomitant]
     Indication: HYPERTENSION
  3. ANTIINFLAMMATORY DRUG [Concomitant]
     Indication: PRODUCT USED FOR UNKNOWN INDICATION
  4. METOPROLOL SUCCINATE [Concomitant]
     Indication: PRODUCT USED FOR UNKNOWN INDICATION
  5. REBIF [Suspect]
     Indication: RELAPSING-REMITTING MULTIPLE SCLEROSIS
     Route: 058
     Dates: start: 20041122
  6. AMLODIPINE [Suspect]
     Indication: HYPERTENSION
  7. CLONAZEPAM [Concomitant]
     Indication: SLEEP DISORDER THERAPY
  8. VASOPRIL [Concomitant]
     Indication: HYPERTENSION

REACTIONS (12)
  - SKIN DISCOLOURATION [None]
  - INJECTION SITE HAEMATOMA [None]
  - DRUG INEFFECTIVE [None]
  - INJECTION SITE ERYTHEMA [None]
  - OEDEMA PERIPHERAL [None]
  - FALL [None]
  - INJURY [None]
  - DISEASE PROGRESSION [None]
  - GAIT DISTURBANCE [None]
  - LOW DENSITY LIPOPROTEIN INCREASED [None]
  - WRONG TECHNIQUE IN DRUG USAGE PROCESS [None]
  - INJECTION SITE NODULE [None]
